FAERS Safety Report 6725877-6 (Version None)
Quarter: 2010Q2

REPORT INFORMATION
  Report Type: 
  Country: None (occurrence: None)
  Receive Date: 20100514
  Receipt Date: 20100511
  Transmission Date: 20101027
  Serious: Yes (Life-Threatening, Hospitalization)
  Sender: FDA-Public Use
  Company Number: PHHO2010BE07094

PATIENT
  Sex: Male
  Weight: 74 kg

DRUGS (1)
  1. CERTICAN [Suspect]
     Indication: HEART TRANSPLANT

REACTIONS (7)
  - ACUTE MYOCARDIAL INFARCTION [None]
  - CIRCULATORY COLLAPSE [None]
  - CORONARY ARTERIAL STENT INSERTION [None]
  - ENDOTRACHEAL INTUBATION [None]
  - EXTUBATION [None]
  - INTRA-AORTIC BALLOON PLACEMENT [None]
  - RESUSCITATION [None]
